FAERS Safety Report 10223100 (Version 3)
Quarter: 2014Q2

REPORT INFORMATION
  Report Type: Report from Study
  Country: US (occurrence: US)
  Receive Date: 20140607
  Receipt Date: 20140618
  Transmission Date: 20141212
  Serious: Yes (Hospitalization)
  Sender: FDA-Public Use
  Company Number: PHEH2014US009046

PATIENT
  Age: 35 Year
  Sex: Female
  Weight: 86.36 kg

DRUGS (8)
  1. GILENYA [Suspect]
     Indication: MULTIPLE SCLEROSIS
     Dosage: 0.5 MG, QD
     Route: 048
     Dates: start: 20110316
  2. GILENYA [Suspect]
     Dosage: 0.5 MG, QD
     Route: 048
     Dates: start: 20140417
  3. VITAMIN B6 [Concomitant]
  4. ZINK//ZINC [Concomitant]
  5. VITAMIN D3 [Concomitant]
  6. AMLODIPINE [Concomitant]
     Dosage: 5 MG, UNK
  7. GLYBURIDE [Concomitant]
     Dosage: 1 DF, QD
     Route: 048
  8. GLYBURIDE [Concomitant]
     Dosage: 2 DF, PRN
     Route: 048

REACTIONS (6)
  - Pain in extremity [Not Recovered/Not Resolved]
  - Heart rate decreased [Not Recovered/Not Resolved]
  - Dizziness [Not Recovered/Not Resolved]
  - Red cell distribution width increased [Unknown]
  - Neutrophil count increased [Unknown]
  - Lymphocyte count decreased [Unknown]
